FAERS Safety Report 10354716 (Version 4)
Quarter: 2014Q4

REPORT INFORMATION
  Report Type: Not Available
  Country: IT (occurrence: IT)
  Receive Date: 20140731
  Receipt Date: 20141120
  Transmission Date: 20150528
  Serious: Yes (Hospitalization)
  Sender: FDA-Public Use
  Company Number: IT-MUNDIPHARMA DS AND PHARMACOVIGILANCE-GBR-2014-0019236

PATIENT
  Age: 45 Year
  Sex: Female
  Weight: 57 kg

DRUGS (3)
  1. MYCOPHENOLATE [Suspect]
     Active Substance: MYCOPHENOLIC ACID
     Indication: PROPHYLAXIS AGAINST TRANSPLANT REJECTION
     Dosage: 500 MG, DAILY
     Route: 048
     Dates: start: 20140404, end: 20140617
  2. TARGIN COMPRESSA A RILASCIO PROLUNGATO CONTIENE 5MG/2,5MG [Suspect]
     Active Substance: NALOXONE HYDROCHLORIDE\OXYCODONE HYDROCHLORIDE
     Indication: PAIN
     Dosage: 10 MG, DAILY
     Route: 048
     Dates: start: 20140513, end: 20140608
  3. TACROLIMUS. [Concomitant]
     Active Substance: TACROLIMUS
     Indication: PROPHYLAXIS AGAINST TRANSPLANT REJECTION
     Dosage: 4 MG, DAILY
     Route: 048
     Dates: start: 20120404, end: 20140426

REACTIONS (2)
  - Pancreatitis [Recovered/Resolved]
  - Abdominal pain [Recovered/Resolved]

NARRATIVE: CASE EVENT DATE: 20140608
